FAERS Safety Report 11854623 (Version 2)
Quarter: 2015Q4

REPORT INFORMATION
  Report Type: Spontaneous
  Country: US (occurrence: None)
  Receive Date: 20151217
  Receipt Date: 20151222
  Transmission Date: 20160305
  Serious: No
  Sender: FDA-Public Use
  Company Number: 1210513-2015-00159

PATIENT
  Age: 68 Year
  Sex: Female
  Weight: 49.9 kg

DRUGS (6)
  1. DENTAGEL [Suspect]
     Active Substance: SODIUM FLUORIDE
     Indication: DENTAL DISORDER PROPHYLAXIS
     Dosage: 1X/DAY
     Route: 004
     Dates: start: 20150616, end: 20151113
  2. DENTAGEL [Suspect]
     Active Substance: SODIUM FLUORIDE
     Indication: DENTAL CARIES
     Dosage: 1X/DAY
     Route: 004
     Dates: start: 20150616, end: 20151113
  3. MULTIVITAMIN [Concomitant]
     Active Substance: VITAMINS
  4. GRAPESEED EXTRACT [Concomitant]
  5. CALCIUM PLUS D [Concomitant]
     Active Substance: CALCIUM\VITAMIN D
  6. FOLIC ACID. [Concomitant]
     Active Substance: FOLIC ACID

REACTIONS (6)
  - Gastrooesophageal reflux disease [None]
  - Pharyngeal disorder [None]
  - Dysphagia [None]
  - Discomfort [None]
  - Pruritus [None]
  - Muscle tightness [None]

NARRATIVE: CASE EVENT DATE: 20151120
